FAERS Safety Report 24953028 (Version 1)
Quarter: 2025Q1

REPORT INFORMATION
  Report Type: Spontaneous
  Country: CA (occurrence: CA)
  Receive Date: 20250211
  Receipt Date: 20250211
  Transmission Date: 20250409
  Serious: Yes (Death)
  Sender: GENMAB
  Company Number: CA-ABBVIE-6128919

PATIENT
  Age: 36 Year
  Sex: Male

DRUGS (1)
  1. EPKINLY [Suspect]
     Active Substance: EPCORITAMAB-BYSP
     Indication: Diffuse large B-cell lymphoma
     Route: 058
     Dates: start: 202406

REACTIONS (2)
  - Diffuse large B-cell lymphoma [Fatal]
  - COVID-19 [Recovered/Resolved]
